FAERS Safety Report 9290730 (Version 1)
Quarter: 2013Q2

REPORT INFORMATION
  Report Type: Report from Study
  Country: CL (occurrence: CL)
  Receive Date: 20130515
  Receipt Date: 20130515
  Transmission Date: 20140414
  Serious: Yes (Other)
  Sender: FDA-Public Use
  Company Number: PHHY2013CL048153

PATIENT
  Age: 82 Year
  Sex: Female

DRUGS (2)
  1. TAREG D [Suspect]
     Indication: BLOOD PRESSURE
     Dosage: 1 DF (VALS 160 MG, HCTZ 12.5 MG)
     Route: 048
  2. INSULIN [Concomitant]
     Dosage: UNK UKN, UNK

REACTIONS (4)
  - Diabetes mellitus [Not Recovered/Not Resolved]
  - Gait disturbance [Not Recovered/Not Resolved]
  - Fall [Not Recovered/Not Resolved]
  - Dizziness [Not Recovered/Not Resolved]
